FAERS Safety Report 9776702 (Version 1)
Quarter: 2013Q4

REPORT INFORMATION
  Report Type: Spontaneous
  Country: IT (occurrence: IT)
  Receive Date: 20131220
  Receipt Date: 20131220
  Transmission Date: 20140711
  Serious: Yes (Death)
  Sender: FDA-Public Use
  Company Number: PHHY2013IT147836

PATIENT
  Age: 86 Year
  Sex: Female

DRUGS (5)
  1. CIPROFLOXACIN [Suspect]
     Indication: URINARY TRACT INFECTION
     Dosage: 2 DF, UNK
  2. METHOTREXATE [Interacting]
     Indication: RHEUMATOID ARTHRITIS
  3. ALLOPURINOL [Concomitant]
     Indication: RHEUMATOID ARTHRITIS
  4. ALENDRONIC ACID [Concomitant]
     Indication: RHEUMATOID ARTHRITIS
  5. VENLAFAXINE [Concomitant]
     Indication: RHEUMATOID ARTHRITIS

REACTIONS (3)
  - Thrombocytopenia [Fatal]
  - Pancytopenia [Fatal]
  - Drug interaction [Fatal]
